FAERS Safety Report 8175759-0 (Version None)
Quarter: 2012Q1

REPORT INFORMATION
  Report Type: 
  Country: None (occurrence: None)
  Receive Date: 20120228
  Receipt Date: 20120228
  Transmission Date: 20120608
  Serious: Yes (Hospitalization)
  Sender: FDA-Public Use
  Company Number: None

PATIENT
  Age: 78 Year
  Sex: Male
  Weight: 95.7 kg

DRUGS (1)
  1. SULFAMETHOXAZOLE AND TRIMETHOPRIM [Suspect]
     Indication: SINUSITIS
     Dosage: 800/60 MG BID PO
     Route: 048
     Dates: start: 20120216, end: 20120222

REACTIONS (7)
  - MUSCULAR WEAKNESS [None]
  - RENAL FAILURE ACUTE [None]
  - DIZZINESS [None]
  - HYPERKALAEMIA [None]
  - MUSCULOSKELETAL STIFFNESS [None]
  - PAIN IN EXTREMITY [None]
  - HYPOAESTHESIA [None]
